FAERS Safety Report 6283370-1 (Version None)
Quarter: 2009Q3

REPORT INFORMATION
  Report Type: 
  Country: None (occurrence: None)
  Receive Date: 20090721
  Receipt Date: 20090721
  Transmission Date: 20100115
  Serious: Yes (Hospitalization)
  Sender: FDA-Public Use
  Company Number: None

PATIENT
  Age: 83 Year
  Sex: Female
  Weight: 56 kg

DRUGS (1)
  1. MOXIFLOXACIN HCL [Suspect]
     Indication: PNEUMONIA
     Dosage: 400 MG DAILY IV
     Route: 042
     Dates: start: 20090430, end: 20090503

REACTIONS (2)
  - DRUG INTOLERANCE [None]
  - ELECTROCARDIOGRAM QT PROLONGED [None]
